FAERS Safety Report 8003052-5 (Version None)
Quarter: 2011Q4

REPORT INFORMATION
  Report Type: 
  Country: None (occurrence: None)
  Receive Date: 20111219
  Receipt Date: 20111206
  Transmission Date: 20120403
  Serious: Yes (Hospitalization, Other)
  Sender: FDA-Public Use
  Company Number: LEO-2011-01095

PATIENT
  Age: 92 Year
  Sex: Female

DRUGS (2)
  1. INNOHEP [Suspect]
     Indication: ATRIAL FIBRILLATION
  2. FLUNDIONE (FLUINDIONE) [Suspect]
     Indication: ATRIAL FIBRILLATION

REACTIONS (2)
  - RENAL FAILURE ACUTE [None]
  - EPISTAXIS [None]
